FAERS Safety Report 9571329 (Version 2)
Quarter: 2013Q4

REPORT INFORMATION
  Report Type: Report from Study
  Country: US (occurrence: US)
  Receive Date: 20131001
  Receipt Date: 20131127
  Transmission Date: 20140711
  Serious: Yes (Hospitalization)
  Sender: FDA-Public Use
  Company Number: US-JNJFOC-20130916945

PATIENT
  Age: 59 Year
  Sex: Male
  Weight: 85.28 kg

DRUGS (3)
  1. USTEKINUMAB [Suspect]
     Indication: PSORIASIS
     Route: 058
     Dates: start: 20130709
  2. USTEKINUMAB [Suspect]
     Indication: PSORIASIS
     Route: 058
     Dates: start: 201010
  3. ACITRETIN [Suspect]
     Indication: PSORIASIS
     Route: 065

REACTIONS (1)
  - Atrial fibrillation [Recovered/Resolved]
